FAERS Safety Report 19623226 (Version 1)
Quarter: 2021Q3

REPORT INFORMATION
  Report Type: Spontaneous
  Country: AU (occurrence: AU)
  Receive Date: 20210729
  Receipt Date: 20210729
  Transmission Date: 20211014
  Serious: Yes (Other)
  Sender: FDA-Public Use
  Company Number: AU-SUN PHARMACEUTICAL INDUSTRIES LTD-2021R1-305863

PATIENT
  Age: 80 Year
  Sex: Male

DRUGS (5)
  1. PACLITAXEL. [Suspect]
     Active Substance: PACLITAXEL
     Indication: BONE DISORDER
     Dosage: UNK
     Route: 065
     Dates: start: 202012
  2. CABAZITAXEL [Suspect]
     Active Substance: CABAZITAXEL
     Indication: BONE DISORDER
     Dosage: UNK
     Route: 065
  3. CARBOPLATIN. [Suspect]
     Active Substance: CARBOPLATIN
     Indication: BONE DISORDER
     Dosage: UNK
     Route: 065
     Dates: start: 202012
  4. DOCETAXEL. [Suspect]
     Active Substance: DOCETAXEL
     Indication: BONE DISORDER
     Dosage: UNK
     Route: 065
  5. DENOSUMAB [Suspect]
     Active Substance: DENOSUMAB
     Indication: BONE DISORDER
     Dosage: UNK
     Route: 065

REACTIONS (2)
  - Disease progression [Unknown]
  - Rash morbilliform [Recovered/Resolved]
